FAERS Safety Report 4673545-7 (Version None)
Quarter: 2005Q2

REPORT INFORMATION
  Report Type: 
  Country: None (occurrence: None)
  Receive Date: 20050525
  Receipt Date: 20050516
  Transmission Date: 20051028
  Serious: Yes (Other)
  Sender: FDA-Public Use
  Company Number: PHEH2005US05540

PATIENT
  Sex: Female

DRUGS (10)
  1. ZOMETA [Suspect]
     Indication: METASTASES TO BONE
     Dosage: 4 MG, UNK
     Dates: start: 20011127, end: 20050421
  2. XELODA [Concomitant]
     Route: 048
  3. NAVELBINE [Concomitant]
  4. AROMASIN [Concomitant]
  5. TAXOTERE [Concomitant]
  6. TAMOXIFEN [Concomitant]
  7. MEGACE [Concomitant]
  8. FEMARA [Concomitant]
  9. TAXOL [Concomitant]
  10. GLIPIZIDE [Concomitant]

REACTIONS (2)
  - BLOOD CREATININE INCREASED [None]
  - OSTEOMYELITIS CHRONIC [None]
